FAERS Safety Report 18870545 (Version 1)
Quarter: 2021Q1

REPORT INFORMATION
  Report Type: Other
  Country: CN (occurrence: CN)
  Receive Date: 20210210
  Receipt Date: 20210210
  Transmission Date: 20210420
  Serious: Yes (Other)
  Sender: FDA-Public Use
  Company Number: CN-ROCHE-2761127

PATIENT
  Sex: Female

DRUGS (3)
  1. CARBOPLATIN. [Suspect]
     Active Substance: CARBOPLATIN
     Indication: BREAST CANCER
     Dosage: 300 MG/M2 OF MIXED SOLUTION (500 ML OF 5% GLUCOSE MIXED WITH 10 MG/ML MIXED SOLUTION (0.1 G CARBOPLA
     Route: 041
  2. DOCETAXEL. [Suspect]
     Active Substance: DOCETAXEL
     Indication: BREAST CANCER
     Route: 041
  3. TRASTUZUMAB. [Suspect]
     Active Substance: TRASTUZUMAB
     Indication: BREAST CANCER
     Dosage: THE FIRST DOSE WAS 4 MG/KG, AND THE SECOND AND SUBSEQUENT DOSES WERE ABOUT 2 MG/KG
     Route: 041

REACTIONS (6)
  - Renal impairment [Unknown]
  - White blood cell count decreased [Unknown]
  - Hepatic function abnormal [Unknown]
  - Vomiting [Unknown]
  - Nausea [Unknown]
  - Neurotoxicity [Unknown]
